FAERS Safety Report 6043122-4 (Version None)
Quarter: 2009Q1

REPORT INFORMATION
  Report Type: 
  Country: None (occurrence: None)
  Receive Date: 20090119
  Receipt Date: 20090106
  Transmission Date: 20090719
  Serious: Yes (Hospitalization)
  Sender: FDA-Public Use
  Company Number: US-ROCHE-606554

PATIENT
  Sex: Female

DRUGS (1)
  1. PEG-INTERFERON A-2A (RO 25-8310) [Suspect]
     Indication: DRUG USE FOR UNKNOWN INDICATION
     Route: 065

REACTIONS (6)
  - KNEE ARTHROPLASTY [None]
  - MALAISE [None]
  - PLATELET COUNT DECREASED [None]
  - TRANSFUSION [None]
  - VOMITING [None]
  - WHITE BLOOD CELL COUNT DECREASED [None]
